FAERS Safety Report 22200532 (Version 1)
Quarter: 2023Q2

REPORT INFORMATION
  Report Type: Spontaneous
  Country: BO (occurrence: BO)
  Receive Date: 20230412
  Receipt Date: 20230412
  Transmission Date: 20230722
  Serious: Yes (Other)
  Sender: FDA-Public Use
  Company Number: BO-SUN PHARMACEUTICAL INDUSTRIES LTD-2023RR-384476

PATIENT
  Age: 12 Year
  Sex: Male

DRUGS (2)
  1. AMLODIPINE [Suspect]
     Active Substance: AMLODIPINE BESYLATE
     Indication: Hypertension
     Dosage: 0.23 MILLIGRAM/KILOGRAM, DAILY
     Route: 065
  2. PROPRANOLOL [Suspect]
     Active Substance: PROPRANOLOL HYDROCHLORIDE
     Indication: Hypertension
     Dosage: 1.8 MILLIGRAM/KILOGRAM, DAILY
     Route: 065

REACTIONS (1)
  - Drug ineffective [Unknown]
